FAERS Safety Report 17202242 (Version 3)
Quarter: 2020Q1

REPORT INFORMATION
  Report Type: Spontaneous
  Country: US (occurrence: US)
  Receive Date: 20191226
  Receipt Date: 20200226
  Transmission Date: 20200409
  Serious: Yes (Other)
  Sender: FDA-Public Use
  Company Number: US-NOVOPROD-703405

PATIENT
  Sex: Male

DRUGS (2)
  1. NOVOLOG [Suspect]
     Active Substance: INSULIN ASPART
     Dosage: UNK
     Route: 058
  2. NOVOLOG [Suspect]
     Active Substance: INSULIN ASPART
     Indication: PRODUCT USED FOR UNKNOWN INDICATION
     Dosage: UNK
     Route: 058

REACTIONS (16)
  - Internal injury [Unknown]
  - Feeling abnormal [Unknown]
  - Back pain [Unknown]
  - Kyphosis [Unknown]
  - Visual impairment [Unknown]
  - Dysuria [Unknown]
  - Suspected counterfeit product [Unknown]
  - Limb discomfort [Unknown]
  - Abdominal discomfort [Unknown]
  - Dysgeusia [Unknown]
  - Dry mouth [Unknown]
  - Constipation [Unknown]
  - Pain [Unknown]
  - Cerebrovascular accident [Unknown]
  - Muscle spasms [Unknown]
  - Dysstasia [Unknown]
